FAERS Safety Report 11474445 (Version 1)
Quarter: 2015Q3

REPORT INFORMATION
  Report Type: Spontaneous
  Country: US (occurrence: None)
  Receive Date: 20150908
  Receipt Date: 20150908
  Transmission Date: 20151125
  Serious: No
  Sender: FDA-Public Use
  Company Number: None

PATIENT
  Age: 69 Year
  Sex: Female
  Weight: 80 kg

DRUGS (5)
  1. THYROXINE [Concomitant]
     Active Substance: LEVOTHYROXINE
  2. METHOTREXATE [Concomitant]
     Active Substance: METHOTREXATE
  3. FOLIC ACID. [Concomitant]
     Active Substance: FOLIC ACID
  4. MIRVASO [Suspect]
     Active Substance: BRIMONIDINE TARTRATE
     Indication: ROSACEA
     Route: 061
     Dates: start: 20150817, end: 20150824
  5. RAMIPRIL. [Concomitant]
     Active Substance: RAMIPRIL

REACTIONS (3)
  - Application site pain [None]
  - Application site exfoliation [None]
  - Application site erythema [None]

NARRATIVE: CASE EVENT DATE: 20150812
